FAERS Safety Report 6515340-X (Version None)
Quarter: 2009Q4

REPORT INFORMATION
  Report Type: 
  Country: None (occurrence: None)
  Receive Date: 20091223
  Receipt Date: 20091217
  Transmission Date: 20100525
  Serious: Yes (Hospitalization)
  Sender: FDA-Public Use
  Company Number: US-ROCHE-653211

PATIENT
  Sex: Female
  Weight: 65.8 kg

DRUGS (7)
  1. CAPECITABINE [Suspect]
     Indication: COLORECTAL CANCER
     Route: 048
     Dates: start: 20090707, end: 20091005
  2. CAPECITABINE [Suspect]
     Route: 048
  3. ESTRADIOL [Concomitant]
     Dosage: START DATE: BEFORE 2009
     Route: 048
  4. CELEBREX [Concomitant]
     Dosage: START DATE: BEFORE 2009
     Route: 048
  5. FOSAMAX [Concomitant]
     Dosage: START DATE: BEFORE 2009
     Route: 048
  6. LEXAPRO [Concomitant]
     Dosage: START DATE: BEFORE 2009
     Route: 048
  7. LUNESTA [Concomitant]
     Dosage: START DATE: BEFORE 2009; AT NIGHT
     Route: 048

REACTIONS (6)
  - ABDOMINAL PAIN [None]
  - CAECITIS [None]
  - DEHYDRATION [None]
  - DIARRHOEA [None]
  - HAEMATOCRIT DECREASED [None]
  - PYREXIA [None]
